FAERS Safety Report 15837781 (Version 9)
Quarter: 2024Q1

REPORT INFORMATION
  Report Type: Report from Study
  Country: JP (occurrence: JP)
  Receive Date: 20190117
  Receipt Date: 20240201
  Transmission Date: 20240409
  Serious: Yes (Life-Threatening, Hospitalization, Disabling, Other)
  Sender: FDA-Public Use
  Company Number: JP-GLAXOSMITHKLINE-JP2019JPN004310

PATIENT

DRUGS (20)
  1. BELIMUMAB [Suspect]
     Active Substance: BELIMUMAB
     Indication: Systemic lupus erythematosus
     Dosage: 10 MG/KG, Q2W
     Route: 041
     Dates: start: 20181108, end: 20181206
  2. PREDNISOLONE [Concomitant]
     Active Substance: PREDNISOLONE
     Indication: Systemic lupus erythematosus
     Dosage: 20 MG, QD
     Route: 048
     Dates: start: 20181108, end: 20181108
  3. PREDNISOLONE [Concomitant]
     Active Substance: PREDNISOLONE
     Dosage: 40 MG, QD
     Route: 048
     Dates: start: 20181109, end: 20181114
  4. PREDNISOLONE [Concomitant]
     Active Substance: PREDNISOLONE
     Dosage: 35 MG, QD
     Route: 048
     Dates: start: 20181115, end: 20181121
  5. PREDNISOLONE [Concomitant]
     Active Substance: PREDNISOLONE
     Dosage: 32.5 MG, QD
     Route: 048
     Dates: start: 20181122, end: 20181128
  6. PREDNISOLONE [Concomitant]
     Active Substance: PREDNISOLONE
     Dosage: 30 MG, QD
     Route: 048
     Dates: start: 20181129
  7. PREDNISOLONE [Concomitant]
     Active Substance: PREDNISOLONE
     Dosage: 15 MG, BID
  8. PREDNISOLONE [Concomitant]
     Active Substance: PREDNISOLONE
     Dosage: 27.5 MG, QD
  9. RITUXIMAB [Concomitant]
     Active Substance: RITUXIMAB
     Indication: Lymphoma
     Dosage: UNK
     Dates: start: 20180919, end: 20181010
  10. ATOVAQUONE [Concomitant]
     Active Substance: ATOVAQUONE
     Indication: Antifungal prophylaxis
     Dosage: 1500 MG, 1D
  11. RABEPRAZOLE SODIUM [Concomitant]
     Active Substance: RABEPRAZOLE SODIUM
     Indication: Gastritis prophylaxis
     Dosage: 10 MG, 1D
  12. URSO [Concomitant]
     Active Substance: URSODIOL
     Indication: Diffuse large B-cell lymphoma
     Dosage: 300 MG, 1D
  13. AMLODIPINE BESYLATE [Concomitant]
     Active Substance: AMLODIPINE BESYLATE
     Indication: Diffuse large B-cell lymphoma
     Dosage: 5 MG, 1D
  14. NAPROXEN SODIUM [Concomitant]
     Active Substance: NAPROXEN\NAPROXEN SODIUM
     Indication: Diffuse large B-cell lymphoma
     Dosage: 300 MG, 1D
  15. BELSOMRA [Concomitant]
     Active Substance: SUVOREXANT
     Indication: Diffuse large B-cell lymphoma
     Dosage: 15 MG, 1D
  16. SLOW K [Concomitant]
     Active Substance: POTASSIUM CHLORIDE
     Indication: Diffuse large B-cell lymphoma
     Dosage: 1200 MG, 1D
  17. BROTIZOLAM [Concomitant]
     Active Substance: BROTIZOLAM
     Indication: Diffuse large B-cell lymphoma
     Dosage: UNK
  18. LEVETIRACETAM [Concomitant]
     Active Substance: LEVETIRACETAM
     Indication: Diffuse large B-cell lymphoma
     Dosage: 1000 MG, 1D
  19. FLOPROPIONE [Concomitant]
     Active Substance: FLOPROPIONE
     Indication: Diffuse large B-cell lymphoma
     Dosage: UNK
  20. MIYA-BM [Concomitant]
     Active Substance: CLOSTRIDIUM BUTYRICUM SPORES STRAIN M-55
     Indication: Prophylaxis against diarrhoea
     Dosage: UNK

REACTIONS (1)
  - Cerebral haemorrhage [Recovered/Resolved with Sequelae]

NARRATIVE: CASE EVENT DATE: 20181218
